FAERS Safety Report 14732480 (Version 1)
Quarter: 2018Q2

REPORT INFORMATION
  Report Type: Report from Study
  Country: None (occurrence: BR)
  Receive Date: 20180409
  Receipt Date: 20180409
  Transmission Date: 20180711
  Serious: Yes (Other)
  Sender: FDA-Public Use
  Company Number: BR-ABBVIE-17K-020-2078660-00

PATIENT
  Age: 51 Year
  Sex: Female
  Weight: 58 kg

DRUGS (5)
  1. HUMIRA [Suspect]
     Active Substance: ADALIMUMAB
     Route: 058
     Dates: start: 2017
  2. VITAMIN D [Concomitant]
     Active Substance: CHOLECALCIFEROL
     Indication: VITAMIN D DECREASED
  3. HUMIRA [Suspect]
     Active Substance: ADALIMUMAB
     Indication: ANKYLOSING SPONDYLITIS
     Route: 058
     Dates: start: 20170315, end: 2017
  4. TANDRILAX [Concomitant]
     Active Substance: ACETAMINOPHEN\CAFFEINE\CARISOPRODOL\DICLOFENAC SODIUM
     Indication: PAIN
  5. GLUCOSAMINE [Concomitant]
     Active Substance: GLUCOSAMINE
     Indication: CHONDROPATHY

REACTIONS (7)
  - Limb discomfort [Unknown]
  - Dysstasia [Not Recovered/Not Resolved]
  - Inflammation [Recovering/Resolving]
  - Drug effect incomplete [Unknown]
  - Rheumatic disorder [Not Recovered/Not Resolved]
  - Gait disturbance [Not Recovered/Not Resolved]
  - Influenza [Recovered/Resolved]

NARRATIVE: CASE EVENT DATE: 201706
